FAERS Safety Report 7429521-4 (Version None)
Quarter: 2011Q2

REPORT INFORMATION
  Report Type: 
  Country: None (occurrence: None)
  Receive Date: 20110421
  Receipt Date: 20110418
  Transmission Date: 20111010
  Serious: Yes (Hospitalization)
  Sender: FDA-Public Use
  Company Number: A0806189A

PATIENT
  Age: 39 Year
  Sex: Male

DRUGS (1)
  1. AVANDIA [Suspect]
     Indication: DIABETES MELLITUS
     Route: 048
     Dates: end: 20090101

REACTIONS (8)
  - HYPERTENSION [None]
  - BACK PAIN [None]
  - MACULAR OEDEMA [None]
  - CONVULSION [None]
  - CARDIAC FAILURE CONGESTIVE [None]
  - ANAEMIA [None]
  - MYOCARDIAL INFARCTION [None]
  - CEREBROVASCULAR ACCIDENT [None]
